FAERS Safety Report 7514593-9 (Version None)
Quarter: 2011Q2

REPORT INFORMATION
  Report Type: 
  Country: None (occurrence: None)
  Receive Date: 20110601
  Receipt Date: 20110525
  Transmission Date: 20111010
  Serious: Yes (Hospitalization, Other)
  Sender: FDA-Public Use
  Company Number: US-ELI_LILLY_AND_COMPANY-US200904000154

PATIENT
  Sex: Male
  Weight: 93.424 kg

DRUGS (9)
  1. DEPAKOTE [Concomitant]
  2. CRESTOR [Concomitant]
     Indication: HYPERCHOLESTEROLAEMIA
  3. TESTOSTERONE [Concomitant]
  4. BYETTA [Suspect]
     Dosage: 10 UG, EACH EVENING
     Dates: start: 20081121, end: 20090329
  5. NEXIUM [Concomitant]
  6. BYETTA [Suspect]
     Indication: TYPE 2 DIABETES MELLITUS
     Dosage: 5 UG, EACH MORNING
     Dates: start: 20070901, end: 20090329
  7. VITAMIN D [Concomitant]
     Dosage: UNK, WEEKLY (1/W)
  8. METFORMIN HCL [Concomitant]
     Indication: DIABETES MELLITUS
     Dosage: UNK
     Dates: start: 20070101
  9. TERAZOSIN HCL [Concomitant]

REACTIONS (3)
  - WEIGHT DECREASED [None]
  - PANCREATITIS [None]
  - NEPHROPATHY [None]
